FAERS Safety Report 4603971-3 (Version None)
Quarter: 2005Q1

REPORT INFORMATION
  Report Type: 
  Country: None (occurrence: None)
  Receive Date: 20050308
  Receipt Date: 20050308
  Transmission Date: 20050727
  Serious: Yes (Hospitalization)
  Sender: FDA-Public Use
  Company Number: None

PATIENT
  Age: 53 Year
  Sex: Male
  Weight: 69.5 kg

DRUGS (1)
  1. PHENYTOIN [Suspect]
     Dosage: 450 MG QHS

REACTIONS (1)
  - DRUG TOXICITY [None]
